FAERS Safety Report 8454067 (Version 3)
Quarter: 2013Q1

REPORT INFORMATION
  Report Type: Spontaneous
  Country: US (occurrence: US)
  Receive Date: 20120312
  Receipt Date: 20130130
  Transmission Date: 20140127
  Serious: Yes (Death, Hospitalization)
  Sender: FDA-Public Use
  Company Number: US-ELI_LILLY_AND_COMPANY-US201203000826

PATIENT
  Sex: Male
  Weight: 7.37 kg

DRUGS (16)
  1. HUMATROPE [Suspect]
     Indication: DWARFISM
     Dosage: 0.15 MG, QD
     Route: 058
     Dates: start: 201111
  2. HUMATROPE [Suspect]
     Dosage: 0.20 MG, UNKNOWN
     Route: 058
  3. LASIX [Concomitant]
     Dosage: UNK, UNKNOWN
     Route: 065
  4. SILDENAFIL [Concomitant]
     Dosage: UNK, UNKNOWN
     Route: 065
  5. BOSENTAN [Concomitant]
     Dosage: UNK, UNKNOWN
     Route: 065
  6. NITRIC OXIDE [Concomitant]
     Dosage: UNK, UNKNOWN
     Route: 065
  7. PREVACID [Concomitant]
     Dosage: UNK, UNKNOWN
     Route: 065
  8. REGLAN [Concomitant]
     Dosage: UNK, UNKNOWN
     Route: 065
  9. POLY-VI-SOL [Concomitant]
     Dosage: UNK, UNKNOWN
     Route: 065
  10. COLISTIN [Concomitant]
     Dosage: UNK, UNKNOWN
     Route: 065
  11. MEROPENEM [Concomitant]
     Dosage: UNK, UNKNOWN
     Route: 065
  12. TOBRAMYCIN [Concomitant]
     Dosage: UNK, UNKNOWN
     Route: 065
  13. VANCOMYCIN [Concomitant]
     Dosage: UNK, UNKNOWN
     Route: 065
  14. MORPHINE [Concomitant]
     Dosage: UNK, UNKNOWN
     Route: 065
  15. ATIVAN [Concomitant]
     Dosage: UNK, UNKNOWN
     Route: 065
  16. VECURONIUM [Concomitant]
     Dosage: UNK, PRN
     Route: 065

REACTIONS (11)
  - Respiratory failure [Fatal]
  - Bacterial tracheitis [Fatal]
  - Pneumonia bacterial [Fatal]
  - Oxygen saturation decreased [Unknown]
  - Aspiration [Unknown]
  - Pulmonary hypertension [Unknown]
  - Cytogenetic abnormality [Unknown]
  - Ventricular septal defect [Unknown]
  - Atrial septal defect [Unknown]
  - Pneumonia [Unknown]
  - Infection [Unknown]
